FAERS Safety Report 4740356-3 (Version None)
Quarter: 2005Q3

REPORT INFORMATION
  Report Type: 
  Country: None (occurrence: None)
  Receive Date: 20050801
  Receipt Date: 20050315
  Transmission Date: 20060218
  Serious: Yes (Hospitalization, Other)
  Sender: FDA-Public Use
  Company Number: HQWYE157916MAR05

PATIENT
  Age: 16 Year
  Sex: Male
  Weight: 73.55 kg

DRUGS (1)
  1. MINOCIN [Suspect]
     Indication: ACNE
     Dosage: 100 MG TWICE DAILY, ORAL
     Route: 048
     Dates: start: 20041220, end: 20041229

REACTIONS (4)
  - BLOOD BILIRUBIN INCREASED [None]
  - CONVULSION [None]
  - HEPATIC ENZYME INCREASED [None]
  - URTICARIA [None]
